FAERS Safety Report 12527841 (Version 2)
Quarter: 2016Q3

REPORT INFORMATION
  Report Type: Report from Study
  Country: US (occurrence: US)
  Receive Date: 20160705
  Receipt Date: 20160718
  Transmission Date: 20161109
  Serious: Yes (Other)
  Sender: FDA-Public Use
  Company Number: US-PACIRA PHARMACEUTICALS, INC.-2016DEPUS00680

PATIENT
  Age: 11 Year
  Sex: Male

DRUGS (11)
  1. VINCRISTINE [Suspect]
     Active Substance: VINCRISTINE
     Indication: DIFFUSE LARGE B-CELL LYMPHOMA
     Dosage: UNK UNK, UNK
  2. METHOTREXATE. [Suspect]
     Active Substance: METHOTREXATE
     Indication: METASTASES TO CENTRAL NERVOUS SYSTEM
     Dosage: UNK UNK, UNK
     Route: 037
  3. HYDROCORTISONE. [Suspect]
     Active Substance: HYDROCORTISONE
     Indication: METASTASES TO CENTRAL NERVOUS SYSTEM
     Dosage: UNK UNK, UNK
     Route: 037
  4. DEXAMETHASONE. [Suspect]
     Active Substance: DEXAMETHASONE
     Indication: DRUG TOXICITY PROPHYLAXIS
     Dosage: UNK UNK, UNK, INDICATION PER PROTOCOL
     Route: 065
  5. RITUXIMAB [Suspect]
     Active Substance: RITUXIMAB
     Indication: DIFFUSE LARGE B-CELL LYMPHOMA
     Dosage: UNK UNK, UNK
     Route: 042
  6. LEUCOVORIN. [Suspect]
     Active Substance: LEUCOVORIN
     Indication: DIFFUSE LARGE B-CELL LYMPHOMA
     Dosage: INTRAVENOUS
     Route: 042
  7. DEPOCYT [Suspect]
     Active Substance: CYTARABINE
     Indication: METASTASES TO CENTRAL NERVOUS SYSTEM
     Dosage: UNK UNK, UNK
     Route: 037
  8. CYCLOPHOSPHAMIDE. [Suspect]
     Active Substance: CYCLOPHOSPHAMIDE
     Indication: DIFFUSE LARGE B-CELL LYMPHOMA
     Dosage: UNK UNK, UNK
     Route: 042
  9. CYTARABINE. [Suspect]
     Active Substance: CYTARABINE
     Indication: METASTASES TO CENTRAL NERVOUS SYSTEM
     Dosage: UNK UNK, UNK
     Route: 037
  10. FILGRASTIM [Suspect]
     Active Substance: FILGRASTIM
     Indication: PROPHYLAXIS
     Dosage: UNK UNK, UNK, INDICATION PER PROTOCOL
     Route: 058
  11. DOXORUBICIN HYDROCHLORIDE. [Suspect]
     Active Substance: DOXORUBICIN HYDROCHLORIDE
     Indication: DIFFUSE LARGE B-CELL LYMPHOMA
     Dosage: UNK UNK, UNK
     Route: 042

REACTIONS (1)
  - Facial nerve disorder [Recovering/Resolving]
